FAERS Safety Report 9796793 (Version 2)
Quarter: 2014Q1

REPORT INFORMATION
  Report Type: Report from Study
  Country: JP (occurrence: JP)
  Receive Date: 20140103
  Receipt Date: 20140220
  Transmission Date: 20141002
  Serious: Yes (Other)
  Sender: FDA-Public Use
  Company Number: JP-OTSUKA-JP-2013-16187

PATIENT
  Sex: Male
  Weight: 83.1 kg

DRUGS (8)
  1. SAMSCA [Suspect]
     Indication: FLUID RETENTION
     Dosage: 15 MG MILLIGRAM(S), QAM
     Route: 048
     Dates: start: 20130105, end: 20130109
  2. SAMSCA [Suspect]
     Dosage: 7.5 MG MILLIGRAM(S), QAM
     Route: 048
     Dates: start: 20130110
  3. LASIX [Concomitant]
     Indication: ASCITES
     Dosage: 80 MG MILLIGRAM(S), DAILY DOSE
     Route: 042
     Dates: end: 20130107
  4. LASIX [Concomitant]
     Indication: OEDEMA
  5. CLINDAMYCIN [Concomitant]
     Indication: INFECTION
     Dosage: 600 MG MILLIGRAM(S), DAILY DOSE
     Route: 042
     Dates: end: 20130110
  6. NEOPHAGEN [Concomitant]
     Indication: HEPATIC FUNCTION ABNORMAL
     Dosage: 40 ML MILLILITRE(S), DAILY DOSE
     Route: 042
     Dates: end: 20130205
  7. URSO [Concomitant]
     Indication: HEPATIC FUNCTION ABNORMAL
     Dosage: 600 MG MILLIGRAM(S), DAILY DOSE
     Route: 048
  8. LIVACT [Concomitant]
     Indication: HEPATIC FUNCTION ABNORMAL
     Dosage: 12.45 G GRAM(S), DAILY DOSE
     Route: 048

REACTIONS (2)
  - Blood urea increased [Unknown]
  - Blood creatinine increased [Unknown]
